FAERS Safety Report 5697865-2 (Version None)
Quarter: 2008Q2

REPORT INFORMATION
  Report Type: 
  Country: None (occurrence: None)
  Receive Date: 20080408
  Receipt Date: 20080401
  Transmission Date: 20081010
  Serious: Yes (Hospitalization)
  Sender: FDA-Public Use
  Company Number: NL-ABBOTT-08P-114-0442618-00

PATIENT
  Sex: Female

DRUGS (1)
  1. HUMIRA [Suspect]
     Indication: RHEUMATOID ARTHRITIS
     Route: 058
     Dates: start: 20070701, end: 20080307

REACTIONS (4)
  - ARTHROPATHY [None]
  - MONOPLEGIA [None]
  - NERVOUS SYSTEM DISORDER [None]
  - SPINAL COLUMN STENOSIS [None]
